FAERS Safety Report 25018097 (Version 2)
Quarter: 2025Q2

REPORT INFORMATION
  Report Type: Spontaneous
  Country: FR (occurrence: FR)
  Receive Date: 20250227
  Receipt Date: 20250411
  Transmission Date: 20250716
  Serious: No
  Sender: TOLMAR
  Company Number: FR-RECGATEWAY-2025000851

PATIENT
  Age: 80 Year
  Sex: Male

DRUGS (1)
  1. ELIGARD [Suspect]
     Active Substance: LEUPROLIDE ACETATE
     Indication: Prostate cancer
     Dates: start: 20250206

REACTIONS (4)
  - Product preparation error [Unknown]
  - Product packaging quantity issue [Unknown]
  - Liquid product physical issue [Unknown]
  - Product reconstitution quality issue [Unknown]

NARRATIVE: CASE EVENT DATE: 20250206
